FAERS Safety Report 11604587 (Version 3)
Quarter: 2015Q4

REPORT INFORMATION
  Report Type: Spontaneous
  Country: US (occurrence: None)
  Receive Date: 20151007
  Receipt Date: 20151104
  Transmission Date: 20160304
  Serious: Yes (Other)
  Sender: FDA-Public Use
  Company Number: ADR-2015-01466

PATIENT
  Age: 53 Year
  Sex: Female

DRUGS (2)
  1. BACLOFEN INTRATHECAL 670 MCG/ML [Suspect]
     Active Substance: BACLOFEN
     Indication: PAIN
     Dosage: 32.16 MCG/DAY
  2. HYDROMORPHONE INTRATHECAL 33 MG/ML [Suspect]
     Active Substance: HYDROMORPHONE
     Indication: PAIN
     Dosage: 1.598 MG/DAY

REACTIONS (4)
  - Drug withdrawal syndrome [None]
  - Drug administration error [None]
  - Somnolence [None]
  - Device infusion issue [None]
